FAERS Safety Report 7313896-0 (Version None)
Quarter: 2011Q1

REPORT INFORMATION
  Report Type: 
  Country: None (occurrence: None)
  Receive Date: 20110217
  Receipt Date: 20110217
  Transmission Date: 20110831
  Serious: Yes (Other)
  Sender: FDA-Public Use
  Company Number: None

PATIENT
  Age: 61 Year
  Sex: Female
  Weight: 88.905 kg

DRUGS (1)
  1. LIPITOR [Suspect]
     Indication: BLOOD CHOLESTEROL INCREASED
     Dosage: 20 MG 1/DAY ORAL
     Route: 048
     Dates: start: 20081001, end: 20101001

REACTIONS (6)
  - TENDON PAIN [None]
  - ASTHENIA [None]
  - ARTHRALGIA [None]
  - MYALGIA [None]
  - MUSCULAR WEAKNESS [None]
  - FATIGUE [None]
